FAERS Safety Report 9047323 (Version 1)
Quarter: 2013Q1

REPORT INFORMATION
  Report Type: Spontaneous
  Country: US (occurrence: US)
  Receive Date: 20130131
  Receipt Date: 20130131
  Transmission Date: 20140127
  Serious: No
  Sender: FDA-Public Use
  Company Number: US-ABBOTT-12P-163-0980116-00

PATIENT
  Age: 58 None
  Sex: Female

DRUGS (1)
  1. HUMIRA [Suspect]
     Indication: CROHN^S DISEASE
     Dates: start: 2009

REACTIONS (3)
  - Crohn^s disease [Not Recovered/Not Resolved]
  - Product container issue [Unknown]
  - Wrong technique in drug usage process [Unknown]
